FAERS Safety Report 6269891-6 (Version None)
Quarter: 2009Q3

REPORT INFORMATION
  Report Type: 
  Country: None (occurrence: None)
  Receive Date: 20090714
  Receipt Date: 20090702
  Transmission Date: 20100115
  Serious: Yes (Other)
  Sender: FDA-Public Use
  Company Number: 2009US000639

PATIENT
  Age: 7 Year
  Sex: Female

DRUGS (48)
  1. AMBISOME [Suspect]
     Indication: PULMONARY MYCOSIS
     Dosage: 58.8 MG, UID/QD, IV NOS
     Route: 042
     Dates: start: 20081209, end: 20090214
  2. POTASSIUM CHLORIDE [Concomitant]
  3. SODIUM ALGINATE CALCIUM GLUCONATE INJ [Concomitant]
  4. ISODINE (POVIDONE-IODINE) [Concomitant]
  5. GASTER [Concomitant]
  6. NEO-MINOPHAGEN C (AMINOACETIC ACID, CYSTEINE HYDROCHLORIDE, GLYCYRRHIZ [Concomitant]
  7. ZYLORIC (ALLOPURINOL SODIUM) [Concomitant]
  8. PROMAC (POLAPREZINC) [Concomitant]
  9. MINOCYCLINE HYDROCHLORIDE (AMINOCYCLINE HYDROCHLORIDE) [Concomitant]
  10. MEROPEN (MEROPENEM TRIHYDRATE) [Concomitant]
  11. CALONAL [Concomitant]
  12. KENKETSU GLOVENIN-I-NICHIYAKU [Concomitant]
  13. SULFAMETHOXAZOLE AND TRIMETHOPRIM [Concomitant]
  14. MYA BM (CLOSTRIDIUM BUTYRICUM) [Concomitant]
  15. VOLTAREN [Concomitant]
  16. MIRACLID (ULINASTATIN) [Concomitant]
  17. DORMICUM [Concomitant]
  18. ATARAX [Concomitant]
  19. KYTRIL [Concomitant]
  20. CYLOCIDE-N (CYTARABINE) [Concomitant]
  21. SOLU-CORTEF [Concomitant]
  22. METHOTREXATE [Concomitant]
  23. ETOPOSIDE [Concomitant]
  24. THIOPENTAL SODIUM [Concomitant]
  25. ANTHROBIN P (ANTITHROMBIN III) [Concomitant]
  26. THERARUBICIN (PIRARUBICIN HYDROCHLORIDE) [Concomitant]
  27. BROACT (CEFPIROME SULFATE) [Concomitant]
  28. BENAMBAX (PENTAMIDINE ISETHIONATE) [Concomitant]
  29. VENETLIN (SALBUTAMOL SULFATE) [Concomitant]
  30. VOLTAREN [Concomitant]
  31. KAYTWO N (MENATETRENONE) [Concomitant]
  32. PLATELETS [Concomitant]
  33. RED BLOOD CELLS [Concomitant]
  34. SODIUM BICARBONATE [Concomitant]
  35. ALKERAN [Concomitant]
  36. URSODIOL [Concomitant]
  37. NORFLOXACIN [Concomitant]
  38. LASIX [Concomitant]
  39. GANCICLOVIR [Concomitant]
  40. HEPARIN [Concomitant]
  41. FLUDARA [Concomitant]
  42. SANDIMMUNE [Concomitant]
  43. UROKINASE (UROKINASE) [Concomitant]
  44. ELASPOL (SIVELESTAT SODIUM) [Concomitant]
  45. ELEMENMIC (ZINC SULFATE, MANGANESE CHLORIDE) [Concomitant]
  46. SOL-MELCORT (METHYLPREDNISOLONE SODIUM SUCCINATE) [Concomitant]
  47. HAPTOGLOBINS (HAPTOGLOBINS) [Concomitant]
  48. MULTAMIN (VITAMINS NOS) [Concomitant]

REACTIONS (28)
  - ACUTE GRAFT VERSUS HOST DISEASE [None]
  - ACUTE RESPIRATORY DISTRESS SYNDROME [None]
  - ALANINE AMINOTRANSFERASE INCREASED [None]
  - ASPARTATE AMINOTRANSFERASE INCREASED [None]
  - BETA 2 MICROGLOBULIN DECREASED [None]
  - BETA 2 MICROGLOBULIN INCREASED [None]
  - BLOOD CHOLESTEROL INCREASED [None]
  - BLOOD LACTATE DEHYDROGENASE INCREASED [None]
  - BLOOD TRIGLYCERIDES INCREASED [None]
  - BLOOD UREA INCREASED [None]
  - BLOOD URIC ACID DECREASED [None]
  - DYSPNOEA [None]
  - EPISTAXIS [None]
  - HEADACHE [None]
  - HYPOGAMMAGLOBULINAEMIA [None]
  - HYPOPROTEINAEMIA [None]
  - LIPIDS INCREASED [None]
  - MALAISE [None]
  - OXYGEN SATURATION DECREASED [None]
  - PAIN [None]
  - PLEURAL EFFUSION [None]
  - PULMONARY ALVEOLAR HAEMORRHAGE [None]
  - PYREXIA [None]
  - RASH [None]
  - RESPIRATORY DEPRESSION [None]
  - STEM CELL TRANSPLANT [None]
  - TACHYPNOEA [None]
  - URTICARIA [None]
